FAERS Safety Report 8773437 (Version 3)
Quarter: 2012Q4

REPORT INFORMATION
  Report Type: 
  Country: US (occurrence: US)
  Receive Date: 20120907
  Receipt Date: 20121025
  Transmission Date: 20130627
  Serious: Yes (Hospitalization, Other)
  Sender: FDA-Public Use
  Company Number: US-009507513-2012SP003704

PATIENT

DRUGS (3)
  1. NUVARING [Suspect]
     Indication: CONTRACEPTION
     Dosage: UNK
     Route: 067
     Dates: start: 200311, end: 201101
  2. NUVARING [Suspect]
     Indication: MENSTRUAL CYCLE MANAGEMENT
  3. VERAPAMIL [Concomitant]
     Indication: HYPERTENSION
     Dosage: UNK

REACTIONS (16)
  - Pulmonary embolism [Unknown]
  - Mitral valve prolapse [Unknown]
  - Supraventricular tachycardia [Unknown]
  - Hypertension [Unknown]
  - Migraine [Unknown]
  - Tooth extraction [Unknown]
  - Headache [Unknown]
  - Menorrhagia [Unknown]
  - Constipation [Unknown]
  - Viral rhinitis [Unknown]
  - Coagulopathy [Unknown]
  - Drug hypersensitivity [Unknown]
  - Supraventricular tachycardia [Unknown]
  - Anxiety [Unknown]
  - Overweight [Unknown]
  - Pulmonary mass [Unknown]
